FAERS Safety Report 9553276 (Version 1)
Quarter: 2013Q3

REPORT INFORMATION
  Report Type: Spontaneous
  Country: US (occurrence: US)
  Receive Date: 20130925
  Receipt Date: 20130925
  Transmission Date: 20140515
  Serious: No
  Sender: FDA-Public Use
  Company Number: US-009507513-1309USA006589

PATIENT
  Age: 60 Year
  Sex: Female
  Weight: 72.56 kg

DRUGS (8)
  1. VICTRELIS [Suspect]
     Indication: HEPATITIS C
     Dosage: 4 CAPSULES (800MG) BY MOUTH THREE TIMES A DAY (EVERY 7-9 HOURS) WITH FOOD
     Route: 048
     Dates: start: 201305
  2. REBETOL [Suspect]
     Indication: HEPATITIS C
     Route: 048
  3. PEGASYS [Suspect]
     Indication: HEPATITIS C
     Dosage: 180MCG/M
  4. PHENERGAN (PROMETHAZINE HYDROCHLORIDE) [Concomitant]
  5. LEVOTHYROXINE SODIUM [Concomitant]
     Route: 048
  6. PREVACID [Concomitant]
  7. LEXAPRO [Concomitant]
  8. ZANTAC 75 [Concomitant]

REACTIONS (4)
  - Diarrhoea [Unknown]
  - Vomiting [Unknown]
  - White blood cell count decreased [Unknown]
  - Dehydration [Unknown]
